FAERS Safety Report 11878856 (Version 2)
Quarter: 2017Q1

REPORT INFORMATION
  Report Type: Spontaneous
  Country: US (occurrence: US)
  Receive Date: 20151230
  Receipt Date: 20170124
  Transmission Date: 20170428
  Serious: Yes (Hospitalization)
  Sender: FDA-Public Use
  Company Number: US-BAYER-2015-496046

PATIENT
  Age: 30 Year
  Sex: Female
  Weight: 47.62 kg

DRUGS (1)
  1. MIRENA [Suspect]
     Active Substance: LEVONORGESTREL
     Indication: CONTRACEPTION
     Dosage: 20 MCG/24HR, CONT
     Route: 015
     Dates: start: 20131107, end: 20141229

REACTIONS (6)
  - Genital haemorrhage [None]
  - Menstruation irregular [None]
  - Device issue [None]
  - Pain [None]
  - Abdominal pain lower [None]
  - Uterine perforation [None]

NARRATIVE: CASE EVENT DATE: 201311
